FAERS Safety Report 6756922-X (Version None)
Quarter: 2010Q2

REPORT INFORMATION
  Report Type: 
  Country: None (occurrence: None)
  Receive Date: 20100603
  Receipt Date: 20100603
  Transmission Date: 20101027
  Serious: Yes (Hospitalization)
  Sender: FDA-Public Use
  Company Number: None

PATIENT
  Age: 24 Year
  Sex: Male
  Weight: 89.5 kg

DRUGS (1)
  1. PREDNISONE [Suspect]
     Dates: start: 20091130, end: 20091208

REACTIONS (5)
  - AGITATION [None]
  - HYPERTENSION [None]
  - MANIA [None]
  - TACHYCARDIA [None]
  - TORTICOLLIS [None]
